FAERS Safety Report 11193158 (Version 4)
Quarter: 2015Q3

REPORT INFORMATION
  Report Type: Spontaneous
  Country: JP (occurrence: JP)
  Receive Date: 20150616
  Receipt Date: 20150701
  Transmission Date: 20151125
  Serious: Yes (Other)
  Sender: FDA-Public Use
  Company Number: JP-JNJFOC-20150607683

PATIENT
  Age: 6 Decade
  Sex: Male

DRUGS (6)
  1. DEPAKENE [Concomitant]
     Active Substance: VALPROIC ACID
     Route: 048
  2. EXCEGRAN [Suspect]
     Active Substance: ZONISAMIDE
     Indication: PRODUCT USED FOR UNKNOWN INDICATION
     Dosage: 100 MG 1 PER DAY
     Route: 048
  3. LOXONIN [Concomitant]
     Active Substance: LOXOPROFEN SODIUM
     Route: 048
  4. TRAMCET [Suspect]
     Active Substance: ACETAMINOPHEN\TRAMADOL
     Indication: PAIN
     Dosage: 4 DF ONCE PER DAY
     Route: 048
     Dates: start: 20150605, end: 20150605
  5. MYSTAN [Concomitant]
     Active Substance: CLOBAZAM
     Route: 048
  6. LENDORMIN [Concomitant]
     Active Substance: BROTIZOLAM
     Route: 048

REACTIONS (19)
  - Visual acuity reduced [Recovered/Resolved]
  - Productive cough [Unknown]
  - Tinnitus [Unknown]
  - Petit mal epilepsy [Unknown]
  - Feeling abnormal [Unknown]
  - Headache [Unknown]
  - Gaze palsy [Unknown]
  - Pain [Recovered/Resolved]
  - Nausea [Unknown]
  - Skin warm [Unknown]
  - Accommodation disorder [Unknown]
  - Diplopia [Unknown]
  - Headache [Unknown]
  - Photopsia [Unknown]
  - Diarrhoea [Recovered/Resolved]
  - Dizziness [Unknown]
  - Vascular pain [Unknown]
  - Pain [Recovering/Resolving]
  - Nightmare [Unknown]

NARRATIVE: CASE EVENT DATE: 20150605
